FAERS Safety Report 17250059 (Version 4)
Quarter: 2020Q1

REPORT INFORMATION
  Report Type: Report from Study
  Country: HR (occurrence: HR)
  Receive Date: 20200109
  Receipt Date: 20200213
  Transmission Date: 20200409
  Serious: Yes (Other)
  Sender: FDA-Public Use
  Company Number: HR-ROCHE-2515784

PATIENT
  Age: 28 Year
  Sex: Female
  Weight: 43.8 kg

DRUGS (20)
  1. METHYLPREDNISOLONE. [Suspect]
     Active Substance: METHYLPREDNISOLONE
     Route: 042
     Dates: start: 20190701, end: 20190701
  2. CHLOROPYRAMINUM [Concomitant]
     Dosage: ONCE BEFORE INFUSION
     Route: 030
     Dates: start: 20180220, end: 20180220
  3. PARACETAMOL [Concomitant]
     Active Substance: ACETAMINOPHEN
     Route: 048
     Dates: start: 20180718, end: 20180718
  4. OCRELIZUMAB. [Suspect]
     Active Substance: OCRELIZUMAB
     Indication: RELAPSING-REMITTING MULTIPLE SCLEROSIS
     Dosage: DAYS 1 AND 15, FOLLOWED BY ONE 600-MG INFUSION DOSE EVERY 24 WEEKS FOR A MAXIMUM OF 8 DOSES THROUGHO
     Route: 042
     Dates: start: 20180206
  5. METHYLPREDNISOLONE. [Suspect]
     Active Substance: METHYLPREDNISOLONE
     Route: 042
     Dates: start: 20191216, end: 20191216
  6. CHLOROPYRAMINUM [Concomitant]
     Dosage: ONCE BEFORE INFUSION
     Route: 030
     Dates: start: 20190701, end: 20190701
  7. PARACETAMOL [Concomitant]
     Active Substance: ACETAMINOPHEN
     Route: 048
     Dates: start: 20180206, end: 20180206
  8. PARACETAMOL [Concomitant]
     Active Substance: ACETAMINOPHEN
     Route: 048
     Dates: start: 20190107, end: 20190107
  9. METHYLPREDNISOLONE. [Suspect]
     Active Substance: METHYLPREDNISOLONE
     Indication: PRODUCT USED FOR UNKNOWN INDICATION
     Dosage: ONCE BEFORE INFUSION
     Route: 042
     Dates: start: 20180206, end: 20180206
  10. PARACETAMOL [Concomitant]
     Active Substance: ACETAMINOPHEN
     Route: 048
     Dates: start: 20180718, end: 20180718
  11. CHLOROPYRAMINUM [Concomitant]
     Dosage: ONCE BEFORE INFUSION
     Route: 030
     Dates: start: 20180206, end: 20180206
  12. CHLOROPYRAMINUM [Concomitant]
     Dosage: ONCE BEFORE INFUSION
     Route: 030
     Dates: start: 20190107, end: 20190107
  13. CHLOROPYRAMINUM [Concomitant]
     Dosage: ONCE BEFORE INFUSION
     Route: 030
     Dates: start: 20191216, end: 20191216
  14. METHYLPREDNISOLONE. [Suspect]
     Active Substance: METHYLPREDNISOLONE
     Dosage: ONCE BEFORE INFUSION
     Route: 042
     Dates: start: 20180220, end: 20180220
  15. METHYLPREDNISOLONE. [Suspect]
     Active Substance: METHYLPREDNISOLONE
     Route: 042
     Dates: start: 20180718, end: 20180718
  16. METHYLPREDNISOLONE. [Suspect]
     Active Substance: METHYLPREDNISOLONE
     Route: 042
     Dates: start: 20190107, end: 20190107
  17. CHLOROPYRAMINUM [Concomitant]
     Dosage: ONCE BEFORE INFUSION
     Route: 030
     Dates: start: 20180718, end: 20180718
  18. PARACETAMOL [Concomitant]
     Active Substance: ACETAMINOPHEN
     Route: 048
     Dates: start: 20180220, end: 20180220
  19. PARACETAMOL [Concomitant]
     Active Substance: ACETAMINOPHEN
     Route: 048
     Dates: start: 20190701, end: 20190701
  20. PARACETAMOL [Concomitant]
     Active Substance: ACETAMINOPHEN
     Route: 048
     Dates: start: 20191216, end: 20191216

REACTIONS (1)
  - Febrile neutropenia [Recovered/Resolved]

NARRATIVE: CASE EVENT DATE: 20191228
